FAERS Safety Report 7364285-4 (Version None)
Quarter: 2011Q1

REPORT INFORMATION
  Report Type: 
  Country: None (occurrence: None)
  Receive Date: 20110321
  Receipt Date: 20110317
  Transmission Date: 20110831
  Serious: Yes (Other)
  Sender: FDA-Public Use
  Company Number: B0700831A

PATIENT
  Sex: Male

DRUGS (6)
  1. KARDEGIC [Concomitant]
  2. SINEMET [Concomitant]
     Indication: PARKINSON'S DISEASE
     Route: 065
     Dates: start: 19950101
  3. REQUIP [Suspect]
     Indication: PARKINSON'S DISEASE
     Dosage: 5MG UNKNOWN
     Route: 048
     Dates: start: 19970101, end: 20071201
  4. TADENAN [Concomitant]
  5. AMIODARONE HCL [Concomitant]
     Route: 065
  6. APOMORPHINE [Concomitant]
     Indication: AKINESIA
     Route: 058

REACTIONS (6)
  - SUICIDE ATTEMPT [None]
  - ON AND OFF PHENOMENON [None]
  - DYSKINESIA [None]
  - MUSCLE SPASMS [None]
  - DISTURBANCE IN SOCIAL BEHAVIOUR [None]
  - PATHOLOGICAL GAMBLING [None]
